FAERS Safety Report 5295327-8 (Version None)
Quarter: 2007Q2

REPORT INFORMATION
  Report Type: 
  Country: None (occurrence: None)
  Receive Date: 20070405
  Receipt Date: 20070320
  Transmission Date: 20071010
  Serious: Yes (Death)
  Sender: FDA-Public Use
  Company Number: WAES 0704USA00233

PATIENT
  Age: 63 Year
  Sex: Male

DRUGS (2)
  1. PRINIVIL [Suspect]
     Indication: HYPERTENSION
     Dosage: SEE IMAGE
     Route: 048
  2. PRINIVIL [Suspect]
     Indication: HYPERTENSION
     Dosage: SEE IMAGE
     Route: 048

REACTIONS (1)
  - BRONCHOPNEUMONIA [None]
